FAERS Safety Report 5840555-3 (Version None)
Quarter: 2008Q3

REPORT INFORMATION
  Report Type: 
  Country: None (occurrence: None)
  Receive Date: 20080731
  Receipt Date: 20080509
  Transmission Date: 20090109
  Serious: No
  Sender: FDA-Public Use
  Company Number: US200805002208

PATIENT
  Age: 63 Year
  Sex: Female
  Weight: 111.1 kg

DRUGS (7)
  1. BYETTA [Suspect]
     Indication: INSULIN-REQUIRING TYPE 2 DIABETES MELLITUS
     Dosage: UG, SUBCUTANEOUS
     Route: 058
     Dates: start: 20080201, end: 20080101
  2. EXENATIDE UNK STRENGTH PEN,DISPOSABLE DEVICE (EXENATIDE PEN (UNKNOWN S [Concomitant]
  3. METFORMIN HCL [Concomitant]
  4. GLYBURIDE [Concomitant]
  5. HUMULIN MIX (INSULIN HUMAN, INSULIN HUMAN INJECTION, ISOPHANE) [Concomitant]
  6. ACTOS /USA/ (PIOGLITAZONE HYDROCHLORIDE) [Concomitant]
  7. SYMLIN [Concomitant]

REACTIONS (3)
  - DIZZINESS [None]
  - EUPHORIC MOOD [None]
  - FEELING DRUNK [None]
